FAERS Safety Report 19198557 (Version 1)
Quarter: 2021Q2

REPORT INFORMATION
  Report Type: Spontaneous
  Country: US (occurrence: US)
  Receive Date: 20210430
  Receipt Date: 20210430
  Transmission Date: 20210717
  Serious: No
  Sender: FDA-Public Use
  Company Number: US-SA-2021SA140293

PATIENT
  Age: 47 Year
  Sex: Female

DRUGS (6)
  1. ADVIL [Concomitant]
     Active Substance: IBUPROFEN
  2. ADVAIR HFA [Concomitant]
     Active Substance: FLUTICASONE PROPIONATE\SALMETEROL XINAFOATE
     Dosage: 100?50 MCG BLST W/DEV
  3. DUPIXENT [Suspect]
     Active Substance: DUPILUMAB
     Indication: ASTHMA
     Dosage: 300 MG, QOW
     Route: 058
     Dates: end: 2021
  4. TOPAMAX [Concomitant]
     Active Substance: TOPIRAMATE
  5. SERTRALINE HCL [Concomitant]
     Active Substance: SERTRALINE HYDROCHLORIDE
     Dosage: 200MG
  6. PROAIR DIGIHALER [Concomitant]
     Active Substance: ALBUTEROL SULFATE
     Dosage: 90 MCG AER PW BAS

REACTIONS (2)
  - Asthma [Recovering/Resolving]
  - Therapeutic response decreased [Recovering/Resolving]

NARRATIVE: CASE EVENT DATE: 202104
